FAERS Safety Report 10039902 (Version 1)
Quarter: 2014Q1

REPORT INFORMATION
  Report Type: Spontaneous
  Country: US (occurrence: US)
  Receive Date: 20140326
  Receipt Date: 20140326
  Transmission Date: 20141002
  Serious: Yes (Other)
  Sender: FDA-Public Use
  Company Number: US-PFIZER INC-2014084117

PATIENT
  Sex: 0

DRUGS (1)
  1. ZOLOFT [Suspect]
     Dosage: 100 MG, 2X/DAY

REACTIONS (6)
  - Bipolar disorder [Unknown]
  - Schizophrenia [Unknown]
  - Depression [Unknown]
  - Panic disorder [Unknown]
  - Obsessive-compulsive disorder [Unknown]
  - Activities of daily living impaired [Unknown]
